FAERS Safety Report 8890819 (Version 1)
Quarter: 2012Q4

REPORT INFORMATION
  Report Type: 
  Country: ES (occurrence: ES)
  Receive Date: 20121107
  Receipt Date: 20121107
  Transmission Date: 20130627
  Serious: Yes (Hospitalization, Other)
  Sender: FDA-Public Use
  Company Number: ES-ROCHE-1152935

PATIENT
  Age: 73 Year
  Sex: Male

DRUGS (3)
  1. AVASTIN [Suspect]
     Indication: NON-SMALL CELL LUNG CANCER
     Dosage: 25MG/ML, VIAL 100MG/4ML SOL
     Route: 042
     Dates: start: 200812, end: 20120712
  2. CARBOPLATIN [Concomitant]
  3. TAXOL [Concomitant]
     Dosage: 6MG/ML
     Route: 065

REACTIONS (2)
  - Pneumonia [Recovered/Resolved]
  - Haemoptysis [Recovered/Resolved]
